FAERS Safety Report 26080353 (Version 1)
Quarter: 2025Q4

REPORT INFORMATION
  Report Type: Spontaneous
  Country: EU (occurrence: EU)
  Receive Date: 20251124
  Receipt Date: 20251124
  Transmission Date: 20260117
  Serious: Yes (Death)
  Sender: JOHNSON AND JOHNSON
  Company Number: EU-JNJFOC-20251167439

PATIENT
  Age: 73 Year
  Sex: Male

DRUGS (1)
  1. SPRAVATO [Suspect]
     Active Substance: ESKETAMINE
     Indication: Depression
     Route: 045
     Dates: start: 202505

REACTIONS (1)
  - Death [Fatal]
